FAERS Safety Report 16283261 (Version 4)
Quarter: 2019Q2

REPORT INFORMATION
  Report Type: Report from Study
  Country: GB (occurrence: GB)
  Receive Date: 20190507
  Receipt Date: 20190529
  Transmission Date: 20190711
  Serious: Yes (Hospitalization)
  Sender: FDA-Public Use
  Company Number: GB-EISAI MEDICAL RESEARCH-EC-2019-055995

PATIENT
  Age: 71 Year
  Sex: Female
  Weight: 80.3 kg

DRUGS (16)
  1. MAGNESIUM [Concomitant]
     Active Substance: MAGNESIUM
     Dates: start: 20190220
  2. CANDESARTAN. [Concomitant]
     Active Substance: CANDESARTAN
     Dates: start: 20190315
  3. ACETAMINOPHEN. [Concomitant]
     Active Substance: ACETAMINOPHEN
     Dates: start: 201901
  4. CETIRIZINE HYDROCHLORIDE. [Concomitant]
     Active Substance: CETIRIZINE HYDROCHLORIDE
     Dates: start: 200901
  5. CODEINE PHOSPHATE [Concomitant]
     Active Substance: CODEINE PHOSPHATE
     Dates: start: 201901
  6. RANITIDINE. [Concomitant]
     Active Substance: RANITIDINE
     Dates: start: 201201
  7. PREGABALIN. [Concomitant]
     Active Substance: PREGABALIN
     Dates: start: 20190218
  8. POLYETHYLENE GLYCOL [Concomitant]
     Active Substance: POLYETHYLENE GLYCOLS
     Dates: start: 201802
  9. AMOXICILLIN AND CLAVULANATE POTASSIUM [Concomitant]
     Active Substance: AMOXICILLIN\CLAVULANATE POTASSIUM
     Dates: start: 20190410
  10. LENVATINIB [Suspect]
     Active Substance: LENVATINIB
     Indication: ENDOMETRIAL CANCER
     Route: 048
     Dates: start: 20190228, end: 20190429
  11. PEMBROLIZUMAB. [Suspect]
     Active Substance: PEMBROLIZUMAB
     Indication: ENDOMETRIAL CANCER
     Route: 041
     Dates: start: 20190228, end: 20190321
  12. PEMBROLIZUMAB. [Suspect]
     Active Substance: PEMBROLIZUMAB
     Route: 041
     Dates: start: 20190411, end: 20190411
  13. LANSOPRAZOLE. [Concomitant]
     Active Substance: LANSOPRAZOLE
     Dates: start: 201901
  14. ORAMORPH [Concomitant]
     Active Substance: MORPHINE SULFATE
     Dates: start: 201802
  15. MOVICOL [Concomitant]
     Active Substance: POLYETHYLENE GLYCOL 3350\POTASSIUM CHLORIDE\SODIUM BICARBONATE\SODIUM CHLORIDE
     Dates: start: 20190220
  16. PANITAZ [Concomitant]
     Dates: start: 20190409

REACTIONS (2)
  - Confusional state [Recovered/Resolved]
  - Gastroenteritis norovirus [Recovered/Resolved]

NARRATIVE: CASE EVENT DATE: 20190430
